FAERS Safety Report 7984444-7 (Version None)
Quarter: 2011Q4

REPORT INFORMATION
  Report Type: 
  Country: None (occurrence: None)
  Receive Date: 20111216
  Receipt Date: 20111207
  Transmission Date: 20120403
  Serious: Yes (Hospitalization, Other)
  Sender: FDA-Public Use
  Company Number: US-ABBOTT-11P-163-0882042-00

PATIENT
  Age: 59 Year
  Sex: Male

DRUGS (3)
  1. UNKNOWN MEDICATIONS [Concomitant]
     Indication: PRODUCT USED FOR UNKNOWN INDICATION
  2. PREDNISONE [Concomitant]
     Indication: CROHN'S DISEASE
     Dosage: TAPER - CURRENTLY 15 MG DAILY
  3. HUMIRA [Suspect]
     Indication: CROHN'S DISEASE
     Dates: start: 20111011, end: 20111105

REACTIONS (6)
  - BLOOD PRESSURE DECREASED [None]
  - PYREXIA [None]
  - SMALL INTESTINAL OBSTRUCTION [None]
  - ASCITES [None]
  - CHILLS [None]
  - CARCINOID TUMOUR [None]
